FAERS Safety Report 17005423 (Version 1)
Quarter: 2019Q4

REPORT INFORMATION
  Report Type: Spontaneous
  Country: US (occurrence: US)
  Receive Date: 20191107
  Receipt Date: 20191107
  Transmission Date: 20200122
  Serious: Yes (Other)
  Sender: FDA-Public Use
  Company Number: US-JNJFOC-20191047315

PATIENT
  Sex: Female
  Weight: 70.29 kg

DRUGS (17)
  1. WARFARIN [Concomitant]
     Active Substance: WARFARIN
  2. BISACODYL. [Concomitant]
     Active Substance: BISACODYL
  3. PREMARIN [Concomitant]
     Active Substance: ESTROGENS, CONJUGATED
  4. HYDROMORPHONE [Concomitant]
     Active Substance: HYDROMORPHONE
  5. SENNOSIDE A+B [Concomitant]
     Active Substance: SENNOSIDES A AND B
  6. CEPHALEXIN                         /00145501/ [Concomitant]
     Active Substance: CEPHALEXIN
  7. GABAPENTIN. [Concomitant]
     Active Substance: GABAPENTIN
  8. PHENAZOPYRIDINE. [Concomitant]
     Active Substance: PHENAZOPYRIDINE
  9. LIDOCAINE. [Concomitant]
     Active Substance: LIDOCAINE
  10. RUXOLITINIB PHOSPHATE [Suspect]
     Active Substance: RUXOLITINIB PHOSPHATE
     Indication: ILL-DEFINED DISORDER
     Route: 048
     Dates: start: 20170301
  11. POLYETHYLENE [Concomitant]
     Active Substance: HIGH DENSITY POLYETHYLENE
  12. ESTRADIOL. [Concomitant]
     Active Substance: ESTRADIOL
  13. AUGMENTIN [Concomitant]
     Active Substance: AMOXICILLIN\CLAVULANATE POTASSIUM
  14. XARELTO [Suspect]
     Active Substance: RIVAROXABAN
     Indication: PRODUCT USED FOR UNKNOWN INDICATION
     Route: 048
  15. TYLENOL [Suspect]
     Active Substance: ACETAMINOPHEN
     Indication: PRODUCT USED FOR UNKNOWN INDICATION
     Route: 065
  16. DILAUDID [Concomitant]
     Active Substance: HYDROMORPHONE HYDROCHLORIDE
  17. ALPRAZOLAM. [Concomitant]
     Active Substance: ALPRAZOLAM

REACTIONS (4)
  - Mental disorder [Unknown]
  - Emotional disorder [Unknown]
  - Mouth haemorrhage [Unknown]
  - Epistaxis [Unknown]
